FAERS Safety Report 8501494-2 (Version None)
Quarter: 2012Q3

REPORT INFORMATION
  Report Type: 
  Country: None (occurrence: None)
  Receive Date: 20120710
  Receipt Date: 20120705
  Transmission Date: 20120928
  Serious: Yes (Death, Hospitalization)
  Sender: FDA-Public Use
  Company Number: US-GILEAD-2012-0057229

PATIENT
  Sex: Female

DRUGS (7)
  1. REMODULIN [Suspect]
     Indication: PULMONARY ARTERIAL HYPERTENSION
     Dosage: UNK
     Dates: start: 20110608, end: 20120621
  2. ADCIRCA [Concomitant]
     Indication: PULMONARY ARTERIAL HYPERTENSION
     Dosage: UNK
     Dates: start: 20100601, end: 20120601
  3. LETAIRIS [Suspect]
     Indication: GENE MUTATION
     Dosage: 5 UNK, UNK
     Route: 048
  4. ASPIRIN [Concomitant]
     Indication: PULMONARY ARTERIAL HYPERTENSION
     Dosage: UNK
     Dates: start: 20100101, end: 20120621
  5. OXYGEN [Concomitant]
  6. LETAIRIS [Suspect]
     Indication: PULMONARY HYPERTENSION
     Dosage: 10 MG, UNK
     Route: 048
     Dates: start: 20110401, end: 20120621
  7. MILRINONE LACTATE [Suspect]
     Dosage: UNK
     Dates: start: 20120618, end: 20120621

REACTIONS (2)
  - RESPIRATORY TRACT INFECTION [None]
  - CARDIO-RESPIRATORY ARREST [None]
